FAERS Safety Report 4594098-8 (Version None)
Quarter: 2005Q1

REPORT INFORMATION
  Report Type: 
  Country: None (occurrence: None)
  Receive Date: 20050223
  Receipt Date: 20050214
  Transmission Date: 20050727
  Serious: Yes (Hospitalization)
  Sender: FDA-Public Use
  Company Number: 2005UW02496

PATIENT
  Age: 86 Year
  Sex: Female

DRUGS (4)
  1. ATENOLOL [Suspect]
     Indication: HYPERTENSION
     Dates: start: 20041001
  2. LIPITOR [Suspect]
     Indication: BLOOD CHOLESTEROL INCREASED
     Dosage: 10 MG QD PO
     Route: 048
     Dates: end: 20041201
  3. ACCUPRIL [Suspect]
     Indication: HYPERTENSION
  4. ANTIHYPERTENSIVES [Concomitant]

REACTIONS (7)
  - ARTHRALGIA [None]
  - ARTHRITIS [None]
  - BACK PAIN [None]
  - CHEST PAIN [None]
  - DIFFICULTY IN WALKING [None]
  - MYALGIA [None]
  - NECK PAIN [None]
